FAERS Safety Report 8066508-5 (Version None)
Quarter: 2012Q1

REPORT INFORMATION
  Report Type: 
  Country: None (occurrence: None)
  Receive Date: 20120124
  Receipt Date: 20120112
  Transmission Date: 20120608
  Serious: Yes (Other)
  Sender: FDA-Public Use
  Company Number: PHHY2012FR003925

PATIENT
  Sex: Male

DRUGS (2)
  1. ANGIOTENSIN CONVERTING ENZYME BLOCKERS [Concomitant]
  2. RASILEZ [Suspect]

REACTIONS (1)
  - CORONARY ARTERY DISEASE [None]
